FAERS Safety Report 7449248-2 (Version None)
Quarter: 2011Q2

REPORT INFORMATION
  Report Type: 
  Country: None (occurrence: None)
  Receive Date: 20110502
  Receipt Date: 20110331
  Transmission Date: 20111010
  Serious: Yes (Hospitalization, Other)
  Sender: FDA-Public Use
  Company Number: US-BAYER-200933600NA

PATIENT
  Age: 37 Year
  Sex: Female
  Weight: 113.38 kg

DRUGS (6)
  1. YAZ [Suspect]
     Indication: CONTRACEPTION
     Dosage: UNK UNK, QD
  2. COUMADIN [Concomitant]
     Indication: DEEP VEIN THROMBOSIS
     Dosage: 7.5 MG, QD
  3. LEXAPRO [Concomitant]
     Dosage: 10 MG, QD
  4. COUMADIN [Concomitant]
     Indication: PULMONARY EMBOLISM
  5. YASMIN [Suspect]
     Indication: CONTRACEPTION
     Dosage: UNK UNK, QD
  6. SYNTHROID [Concomitant]
     Dosage: 0.75 MG, QD

REACTIONS (6)
  - PULMONARY EMBOLISM [None]
  - RESPIRATORY FAILURE [None]
  - ANAEMIA [None]
  - DEEP VEIN THROMBOSIS [None]
  - HAEMATOMA [None]
  - PAIN [None]
